FAERS Safety Report 21898135 (Version 1)
Quarter: 2023Q1

REPORT INFORMATION
  Report Type: Other
  Country: CA (occurrence: CA)
  Receive Date: 20230123
  Receipt Date: 20230123
  Transmission Date: 20230418
  Serious: Yes (Other)
  Sender: FDA-Public Use
  Company Number: CA-PFIZER INC-202300024597

PATIENT
  Age: 53 Year
  Sex: Female

DRUGS (24)
  1. LORAZEPAM [Suspect]
     Active Substance: LORAZEPAM
     Dosage: 1 MG, 1X/DAY
     Route: 065
  2. ESTRADIOL [Suspect]
     Active Substance: ESTRADIOL
     Dosage: 50 UG, 1X/DAY
     Route: 065
  3. SOMATROPIN [Suspect]
     Active Substance: SOMATROPIN
     Route: 065
  4. VARENICLINE TARTRATE [Suspect]
     Active Substance: VARENICLINE TARTRATE
     Dosage: 1 MG, 2X/DAY
     Route: 065
  5. VARENICLINE TARTRATE [Suspect]
     Active Substance: VARENICLINE TARTRATE
     Dosage: 0.5 MG, 1X/DAY
     Route: 065
  6. BIFIDOBACTERIUM LONGUM [Suspect]
     Active Substance: BIFIDOBACTERIUM LONGUM
     Dosage: UNK
     Route: 048
  7. BIFIDOBACTERIUM LONGUM [Suspect]
     Active Substance: BIFIDOBACTERIUM LONGUM
     Dosage: UNK
     Route: 065
  8. BUDESONIDE\FORMOTEROL FUMARATE [Suspect]
     Active Substance: BUDESONIDE\FORMOTEROL FUMARATE
     Dosage: 6 UG, 2X/DAY
     Route: 065
  9. BUDESONIDE\FORMOTEROL FUMARATE [Suspect]
     Active Substance: BUDESONIDE\FORMOTEROL FUMARATE
     Dosage: 200 UG, 2X/DAY
     Route: 065
  10. DOCONEXENT [Suspect]
     Active Substance: DOCONEXENT
     Dosage: 120 MG, 2X/DAY
     Route: 048
  11. ICOSAPENT [Suspect]
     Active Substance: ICOSAPENT
     Dosage: 180 MG, 2X/DAY
     Route: 048
  12. LACTOBACILLUS ACIDOPHILUS [Suspect]
     Active Substance: LACTOBACILLUS ACIDOPHILUS
     Dosage: UNK, 3X/DAY
     Route: 065
  13. LACTOBACILLUS CASEI [Suspect]
     Active Substance: LACTOBACILLUS CASEI
     Dosage: UNK, 3X/DAY
     Route: 065
  14. LACTOBACILLUS RHAMNOSUS [Suspect]
     Active Substance: LACTOBACILLUS RHAMNOSUS
     Dosage: UNK, 3X/DAY
     Route: 065
  15. LINOLEIC ACID [Suspect]
     Active Substance: LINOLEIC ACID
     Dosage: UNK, 3X/DAY
     Route: 048
  16. MSM [Suspect]
     Active Substance: DIMETHYL SULFONE
     Dosage: 1000 MG
     Route: 065
  17. PROGESTERONE [Suspect]
     Active Substance: PROGESTERONE
     Dosage: 100 MG, 1X/DAY
     Route: 065
  18. .ALPHA.-LIPOIC ACID [Suspect]
     Active Substance: .ALPHA.-LIPOIC ACID
     Dosage: 3.75 MG
     Route: 065
  19. UBIDECARENONE [Suspect]
     Active Substance: UBIDECARENONE
     Dosage: 3.75 MG
     Route: 065
  20. VENLAFAXINE [Suspect]
     Active Substance: VENLAFAXINE HYDROCHLORIDE
     Dosage: 150 MG
     Route: 065
  21. VITAMIN A [Suspect]
     Active Substance: VITAMIN A
     Dosage: 188 UG, 2X/DAY
     Route: 048
  22. VITAMIN C [Suspect]
     Active Substance: ASCORBIC ACID
     Dosage: 15 MG, 2X/DAY
     Route: 048
  23. VITAMIN D NOS [Suspect]
     Active Substance: VITAMIN D NOS
     Dosage: 1000 IU, 1X/DAY
     Route: 048
  24. .ALPHA.-TOCOPHEROL [Suspect]
     Active Substance: .ALPHA.-TOCOPHEROL
     Dosage: 7.5 MG
     Route: 048

REACTIONS (1)
  - Hepatotoxicity [Unknown]
